FAERS Safety Report 13881375 (Version 1)
Quarter: 2017Q3

REPORT INFORMATION
  Report Type: Spontaneous
  Country: US (occurrence: US)
  Receive Date: 20170818
  Receipt Date: 20170818
  Transmission Date: 20171127
  Serious: No
  Sender: FDA-Public Use
  Company Number: PHEH2017US025015

PATIENT
  Sex: Female

DRUGS (1)
  1. CATAFLAM [Suspect]
     Active Substance: DICLOFENAC POTASSIUM
     Indication: FIBROMYALGIA
     Dosage: 300 MG, BID
     Route: 048
     Dates: start: 20161018

REACTIONS (9)
  - Incorrect dose administered [Unknown]
  - Sleep disorder [Unknown]
  - Depressed mood [Unknown]
  - Chest pain [Unknown]
  - Drug ineffective [Unknown]
  - Paraesthesia [Unknown]
  - Chest discomfort [Unknown]
  - Hypersensitivity [Unknown]
  - Pain [Unknown]
